FAERS Safety Report 22263776 (Version 2)
Quarter: 2024Q1

REPORT INFORMATION
  Report Type: Spontaneous
  Country: FR (occurrence: FR)
  Receive Date: 20230428
  Receipt Date: 20240124
  Transmission Date: 20240410
  Serious: Yes (Death, Other)
  Sender: FDA-Public Use
  Company Number: None

PATIENT

DRUGS (1)
  1. NUCALA [Suspect]
     Active Substance: MEPOLIZUMAB
     Indication: Hypereosinophilic syndrome
     Dosage: 300 MG
     Route: 058
     Dates: start: 20230301

REACTIONS (2)
  - Cardiogenic shock [Fatal]
  - Giant cell myocarditis [Fatal]

NARRATIVE: CASE EVENT DATE: 20230331
